FAERS Safety Report 6725783-7 (Version None)
Quarter: 2010Q2

REPORT INFORMATION
  Report Type: 
  Country: None (occurrence: None)
  Receive Date: 20100514
  Receipt Date: 20100506
  Transmission Date: 20101027
  Serious: Yes (Other)
  Sender: FDA-Public Use
  Company Number: GB-ELI_LILLY_AND_COMPANY-GB201005002039

PATIENT
  Sex: Male

DRUGS (2)
  1. ALIMTA [Suspect]
     Dosage: UNK, UNKNOWN
     Route: 065
  2. THERAPEUTIC RADIOPHARMACEUTICALS [Concomitant]
     Dosage: UNK, UNKNOWN
     Route: 065

REACTIONS (1)
  - RADIATION OESOPHAGITIS [None]
